FAERS Safety Report 7691006-8 (Version None)
Quarter: 2011Q3

REPORT INFORMATION
  Report Type: 
  Country: None (occurrence: None)
  Receive Date: 20110818
  Receipt Date: 20110815
  Transmission Date: 20111222
  Serious: Yes (Other)
  Sender: FDA-Public Use
  Company Number: US-PFIZER INC-2011187608

PATIENT
  Sex: Female
  Weight: 48.6 kg

DRUGS (1)
  1. PREMARIN [Suspect]
     Indication: OESTROGEN REPLACEMENT THERAPY
     Dosage: 1.25 MG 1X/DAY
     Route: 048

REACTIONS (7)
  - PHARYNGEAL OEDEMA [None]
  - DYSPNOEA [None]
  - PO2 DECREASED [None]
  - SWOLLEN TONGUE [None]
  - RHINORRHOEA [None]
  - NEPHRITIS [None]
  - RED BLOOD CELL COUNT INCREASED [None]
